FAERS Safety Report 8835042 (Version 2)
Quarter: 2012Q4

REPORT INFORMATION
  Report Type: Spontaneous
  Country: US (occurrence: None)
  Receive Date: 20120924
  Receipt Date: 20121018
  Transmission Date: 20130627
  Serious: Yes (Hospitalization)
  Sender: FDA-Public Use
  Company Number: 2012MZ000379

PATIENT
  Age: 64 Year
  Sex: Male

DRUGS (8)
  1. XEOMIN [Suspect]
     Indication: TREMOR OF HANDS
  2. XEOMIN [Suspect]
     Indication: OFF LABEL USE
  3. XEOMIN [Suspect]
     Indication: TREMOR OF HANDS
  4. XEOMIN [Suspect]
     Indication: OFF LABEL USE
  5. XEOMIN [Suspect]
     Indication: TREMOR OF HANDS
  6. XEOMIN [Suspect]
     Indication: OFF LABEL USE
  7. PRIMIDONE [Concomitant]
  8. LISINOPRIL [Concomitant]

REACTIONS (17)
  - Pyrexia [None]
  - Rash maculo-papular [None]
  - Confusional state [None]
  - Lethargy [None]
  - Ataxia [None]
  - Urinary incontinence [None]
  - CSF protein increased [None]
  - C-reactive protein increased [None]
  - Red blood cell sedimentation rate increased [None]
  - Electroencephalogram abnormal [None]
  - Hiccups [None]
  - Central nervous system lesion [None]
  - CSF immunoglobulin increased [None]
  - Antinuclear antibody positive [None]
  - Bedridden [None]
  - Mutism [None]
  - Encephalitis [None]
